FAERS Safety Report 9140377 (Version 2)
Quarter: 2013Q2

REPORT INFORMATION
  Report Type: Spontaneous
  Country: CA (occurrence: CA)
  Receive Date: 20130305
  Receipt Date: 20130403
  Transmission Date: 20140414
  Serious: Yes (Other)
  Sender: FDA-Public Use
  Company Number: PHHY2013CA021032

PATIENT
  Age: 39 Year
  Sex: Female

DRUGS (3)
  1. GILENYA [Suspect]
     Indication: RELAPSING-REMITTING MULTIPLE SCLEROSIS
     Dosage: 0.5 MG, QD
     Route: 048
     Dates: start: 201301
  2. D-TABS [Concomitant]
     Dosage: 10.000 U, PER WEEK
  3. FIORINAL [Concomitant]

REACTIONS (3)
  - Amnesia [Unknown]
  - Stress [Recovered/Resolved]
  - Fatigue [Recovered/Resolved]
